FAERS Safety Report 5707456-2 (Version None)
Quarter: 2008Q2

REPORT INFORMATION
  Report Type: 
  Country: None (occurrence: None)
  Receive Date: 20080416
  Receipt Date: 20080403
  Transmission Date: 20081010
  Serious: Yes (Other)
  Sender: FDA-Public Use
  Company Number: CA-ELI_LILLY_AND_COMPANY-CA200803004434

PATIENT
  Age: 73 Year
  Sex: Female

DRUGS (15)
  1. CYMBALTA [Suspect]
     Indication: NEURALGIA
     Dosage: 30 MG, DAILY (1/D)
     Dates: start: 20080227, end: 20080306
  2. CYMBALTA [Suspect]
     Dosage: 30 MG, UNK
     Dates: start: 20080313
  3. AMOXICILLIN [Concomitant]
  4. LISINOPRIL [Concomitant]
  5. TORADOL [Concomitant]
  6. SENOKOT [Concomitant]
  7. PREMARIN [Concomitant]
  8. BUPROPION HCL [Concomitant]
  9. REMERON [Concomitant]
  10. MS CONTIN [Concomitant]
  11. NEXIUM [Concomitant]
  12. LORAZEPAM [Concomitant]
     Dosage: UNK, AS NEEDED
  13. CALCIUM [Concomitant]
  14. VITAMIN D [Concomitant]
  15. ESTRACE [Concomitant]

REACTIONS (4)
  - ALANINE AMINOTRANSFERASE INCREASED [None]
  - ASPARTATE AMINOTRANSFERASE INCREASED [None]
  - BLOOD ALKALINE PHOSPHATASE INCREASED [None]
  - GAMMA-GLUTAMYLTRANSFERASE INCREASED [None]
